FAERS Safety Report 16147552 (Version 1)
Quarter: 2019Q2

REPORT INFORMATION
  Report Type: Spontaneous
  Country: IT (occurrence: IT)
  Receive Date: 20190402
  Receipt Date: 20190402
  Transmission Date: 20190711
  Serious: Yes (Hospitalization)
  Sender: FDA-Public Use
  Company Number: IT-GILEAD-2019-0399780

PATIENT
  Age: 64 Year
  Sex: Male

DRUGS (8)
  1. AMBRISENTAN [Suspect]
     Active Substance: AMBRISENTAN
     Indication: PULMONARY HYPERTENSION
     Dosage: 10 MG, QD
     Route: 048
  2. MYCOPHENOLATE MOFETIL. [Concomitant]
     Active Substance: MYCOPHENOLATE MOFETIL
     Dosage: 250 MG, QOD
     Route: 048
  3. BISOPROLOL FUMARATE. [Concomitant]
     Active Substance: BISOPROLOL FUMARATE
     Indication: CARDIOVASCULAR EVENT PROPHYLAXIS
     Dosage: 1.25 MG, QD
     Route: 048
  4. CALCITRIOL. [Concomitant]
     Active Substance: CALCITRIOL
     Indication: OSTEOPOROSIS
     Dosage: 0.25 MG, QD
     Route: 048
  5. ALLOPURINOL. [Concomitant]
     Active Substance: ALLOPURINOL
     Indication: HYPERURICAEMIA
     Dosage: 150 MG, QD
     Route: 048
  6. EVEROLIMUS. [Concomitant]
     Active Substance: EVEROLIMUS
     Indication: IMMUNOSUPPRESSION
     Dosage: 1.5 MG, QD
     Route: 048
  7. CARDIOASPIRIN [Concomitant]
     Active Substance: ASPIRIN
     Indication: CARDIOVASCULAR EVENT PROPHYLAXIS
     Dosage: 100 MG/KG, QD
     Route: 048
  8. MYCOPHENOLATE MOFETIL. [Concomitant]
     Active Substance: MYCOPHENOLATE MOFETIL
     Indication: IMMUNOSUPPRESSION
     Dosage: 500 MG, QOD
     Route: 048

REACTIONS (2)
  - Anaemia [Recovered/Resolved]
  - Asthenia [Recovered/Resolved]

NARRATIVE: CASE EVENT DATE: 20190110
